FAERS Safety Report 15630587 (Version 2)
Quarter: 2020Q2

REPORT INFORMATION
  Report Type: Spontaneous
  Country: DE (occurrence: DE)
  Receive Date: 20181119
  Receipt Date: 20200628
  Transmission Date: 20200713
  Serious: Yes (Hospitalization, Other)
  Sender: FDA-Public Use
  Company Number: PHHY2018DE156390

PATIENT
  Sex: Female
  Weight: 75 kg

DRUGS (13)
  1. DEXAMETHASONE. [Suspect]
     Active Substance: DEXAMETHASONE
     Indication: PLASMA CELL MYELOMA
     Dosage: 20 MG (ON DAY 1, 8, 15 AND 22 PER CYCLE)
     Route: 065
     Dates: start: 20180416
  2. KYPROLIS [Suspect]
     Active Substance: CARFILZOMIB
     Dosage: 27 MG/M2
     Route: 042
     Dates: start: 20180514, end: 20180528
  3. ALENDRONATE [Concomitant]
     Active Substance: ALENDRONATE SODIUM
     Indication: OSTEOPENIA
     Dosage: 70 MG
     Route: 065
  4. KEVATRIL [Concomitant]
     Active Substance: GRANISETRON HYDROCHLORIDE
     Dosage: 250 ML, PRN
     Route: 065
     Dates: start: 20180416
  5. OMEPRAZOLE. [Concomitant]
     Active Substance: OMEPRAZOLE
     Indication: PROPHYLAXIS
     Dosage: 40 MG, QD
     Route: 065
     Dates: start: 20180616
  6. LENALIDOMIDE [Suspect]
     Active Substance: LENALIDOMIDE
     Dosage: 25 MG
     Route: 065
     Dates: start: 20180605
  7. LENALIDOMIDE [Suspect]
     Active Substance: LENALIDOMIDE
     Dosage: 15 MG
     Route: 065
     Dates: start: 20180731
  8. ASA [Concomitant]
     Active Substance: ASPIRIN
     Indication: PROPHYLAXIS
     Dosage: 100 MG, QD
     Route: 065
     Dates: start: 20180416
  9. LENALIDOMIDE [Suspect]
     Active Substance: LENALIDOMIDE
     Indication: PLASMA CELL MYELOMA
     Dosage: 25 MG
     Route: 065
     Dates: start: 20180416, end: 20180605
  10. ACICLOVIR [Concomitant]
     Active Substance: ACYCLOVIR
     Indication: PROPHYLAXIS
     Dosage: 800 MG, QD
     Route: 065
     Dates: start: 20180416
  11. KYPROLIS [Suspect]
     Active Substance: CARFILZOMIB
     Indication: PLASMA CELL MYELOMA
     Dosage: 20 MG/M2
     Route: 042
     Dates: start: 20180416, end: 20180416
  12. COTRIM FORTE [Concomitant]
     Active Substance: SULFAMETHOXAZOLE\TRIMETHOPRIM
     Indication: PROPHYLAXIS
     Dosage: 960 MILLIGRAM, 2 TIMES/WK
     Route: 065
     Dates: start: 20180416
  13. KEVATRIL [Concomitant]
     Active Substance: GRANISETRON HYDROCHLORIDE
     Indication: PROPHYLAXIS
     Dosage: 250 ML, PRN
     Route: 065

REACTIONS (3)
  - Cardiac disorder [Recovered/Resolved]
  - Asthenia [Recovered/Resolved]
  - Arrhythmia [Recovered/Resolved]

NARRATIVE: CASE EVENT DATE: 20180925
